FAERS Safety Report 23427617 (Version 2)
Quarter: 2024Q1

REPORT INFORMATION
  Report Type: Report from Study
  Country: US (occurrence: US)
  Receive Date: 20240122
  Receipt Date: 20240219
  Transmission Date: 20240410
  Serious: Yes (Hospitalization)
  Sender: FDA-Public Use
  Company Number: US-INSMED, INC.-2023-05009-US

PATIENT
  Age: 52 Year
  Sex: Female

DRUGS (1)
  1. ARIKAYCE [Suspect]
     Active Substance: AMIKACIN
     Indication: Mycobacterium avium complex infection
     Dosage: 590 MILLIGRAM, QD
     Route: 055
     Dates: start: 20231220, end: 20240208

REACTIONS (7)
  - Condition aggravated [Unknown]
  - Aphonia [Unknown]
  - Headache [Unknown]
  - Dyspnoea [Not Recovered/Not Resolved]
  - Dysphonia [Not Recovered/Not Resolved]
  - Cough [Unknown]
  - Adverse event [Unknown]

NARRATIVE: CASE EVENT DATE: 20231201
